FAERS Safety Report 5053540-9 (Version None)
Quarter: 2006Q3

REPORT INFORMATION
  Report Type: 
  Country: None (occurrence: None)
  Receive Date: 20060712
  Receipt Date: 20060704
  Transmission Date: 20061208
  Serious: Yes (Hospitalization)
  Sender: FDA-Public Use
  Company Number: 200610638BFR

PATIENT
  Age: 50 Year
  Sex: Male

DRUGS (6)
  1. CIFLOX           (CIPROFLOXACIN) [Suspect]
     Indication: BACK PAIN
     Dates: start: 20060224, end: 20060331
  2. CIFLOX           (CIPROFLOXACIN) [Suspect]
     Indication: PYREXIA
     Dates: start: 20060224, end: 20060331
  3. RIFADIN [Suspect]
     Indication: BACK PAIN
     Dates: start: 20060224, end: 20060331
  4. RIFADIN [Suspect]
     Indication: PYREXIA
     Dates: start: 20060224, end: 20060331
  5. COLCHICINE [Concomitant]
  6. LOVENOX [Suspect]
     Dates: start: 20060224, end: 20060331

REACTIONS (4)
  - GOUT [None]
  - LEUKOPENIA [None]
  - LYMPHOPENIA [None]
  - NEUTROPENIA [None]
